FAERS Safety Report 4981685-8 (Version None)
Quarter: 2006Q2

REPORT INFORMATION
  Report Type: 
  Country: None (occurrence: None)
  Receive Date: 20060420
  Receipt Date: 20060420
  Transmission Date: 20061013
  Serious: Yes (Hospitalization, Other)
  Sender: FDA-Public Use
  Company Number: None

PATIENT
  Sex: Male
  Weight: 99.8 kg

DRUGS (1)
  1. ONTAK [Suspect]
     Indication: NEOPLASM
     Dosage: 1778 MCG

REACTIONS (3)
  - BLOOD CREATININE INCREASED [None]
  - HAEMATOMA [None]
  - SYNCOPE [None]
